FAERS Safety Report 23629135 (Version 1)
Quarter: 2024Q1

REPORT INFORMATION
  Report Type: Spontaneous
  Country: US (occurrence: US)
  Receive Date: 20240313
  Receipt Date: 20240313
  Transmission Date: 20240410
  Serious: No
  Sender: FDA-Public Use
  Company Number: US-VYERA PHARMACEUTICALS, LLC-2023VYE00015

PATIENT
  Sex: Female

DRUGS (4)
  1. DARAPRIM [Suspect]
     Active Substance: PYRIMETHAMINE
     Indication: Eye infection toxoplasmal
     Dosage: 25 MG, 1X/DAY
     Route: 048
     Dates: start: 2023, end: 2023
  2. CLINDAMYCIN [Concomitant]
     Active Substance: CLINDAMYCIN
  3. LEUCOVORIN [Concomitant]
     Active Substance: LEUCOVORIN\LEUCOVORIN CALCIUM
  4. DIFLUPREDNATE [Concomitant]
     Active Substance: DIFLUPREDNATE

REACTIONS (2)
  - Full blood count decreased [Unknown]
  - Off label use [Recovered/Resolved]

NARRATIVE: CASE EVENT DATE: 20230101
